FAERS Safety Report 5779612-9 (Version None)
Quarter: 2008Q2

REPORT INFORMATION
  Report Type: 
  Country: None (occurrence: None)
  Receive Date: 20080619
  Receipt Date: 20080102
  Transmission Date: 20081010
  Serious: No
  Sender: FDA-Public Use
  Company Number: US-ASTRAZENECA-2008UW00118

PATIENT
  Age: 59 Year
  Sex: Female
  Weight: 68 kg

DRUGS (4)
  1. ATACAND HCT [Suspect]
     Dosage: 32/12.5 MG CANDESARTAN CILEXETIL/HYDROCHLOROTHIAZIDE
     Route: 048
  2. SYMBICORT [Concomitant]
  3. RHINOCORT [Concomitant]
  4. ALEVE [Concomitant]

REACTIONS (4)
  - BLOOD PRESSURE INCREASED [None]
  - DIZZINESS [None]
  - DRUG INEFFECTIVE [None]
  - HEART RATE INCREASED [None]
